FAERS Safety Report 8618615-3 (Version None)
Quarter: 2012Q3

REPORT INFORMATION
  Report Type: 
  Country: None (occurrence: None)
  Receive Date: 20120814
  Receipt Date: 20120814
  Transmission Date: 20120928
  Serious: Yes (Disabling)
  Sender: FDA-Public Use
  Company Number: None

PATIENT
  Age: 27 Year
  Sex: Female
  Weight: 83.9154 kg

DRUGS (2)
  1. LUPRON DEPOT [Suspect]
     Indication: ENDOMETRIOSIS
     Dosage: 3 MONTHS SHOT
     Dates: start: 20120701
  2. LUPRON DEPOT [Suspect]
     Indication: ENDOMETRIOSIS
     Dosage: 3 MONTHS SHOT
     Dates: start: 20120601, end: 20120701

REACTIONS (6)
  - ARTHRALGIA [None]
  - MOBILITY DECREASED [None]
  - PAIN IN EXTREMITY [None]
  - FATIGUE [None]
  - BACK PAIN [None]
  - PAIN [None]
